FAERS Safety Report 19661015 (Version 5)
Quarter: 2021Q4

REPORT INFORMATION
  Report Type: Spontaneous
  Country: IN (occurrence: IN)
  Receive Date: 20210805
  Receipt Date: 20211229
  Transmission Date: 20220303
  Serious: Yes (Death, Other)
  Sender: FDA-Public Use
  Company Number: IN-PFIZER INC-2021492268

PATIENT
  Age: 79 Year
  Sex: Male
  Weight: 59.9 kg

DRUGS (2)
  1. DACOMITINIB [Suspect]
     Active Substance: DACOMITINIB
     Indication: Lung adenocarcinoma
     Dosage: 30 MG, 1X/DAY (ORAL)
     Route: 048
     Dates: start: 20200313, end: 20200704
  2. DACOMITINIB [Suspect]
     Active Substance: DACOMITINIB
     Dosage: 15 MG, 1X/DAY
     Route: 048
     Dates: start: 20200922, end: 20211201

REACTIONS (15)
  - Death [Fatal]
  - Pulmonary fibrosis [Unknown]
  - Pulmonary mass [Unknown]
  - Vascular pseudoaneurysm [Recovering/Resolving]
  - Hilar lymphadenopathy [Unknown]
  - Lymphadenopathy mediastinal [Unknown]
  - Pleural thickening [Unknown]
  - Pleural effusion [Unknown]
  - Cholelithiasis [Unknown]
  - Decreased appetite [Unknown]
  - Heart rate increased [Unknown]
  - Pulmonary calcification [Unknown]
  - Blood pressure increased [Unknown]
  - Blood urea increased [Unknown]
  - Protein total decreased [Unknown]

NARRATIVE: CASE EVENT DATE: 20210628
